FAERS Safety Report 11570297 (Version 2)
Quarter: 2015Q4

REPORT INFORMATION
  Report Type: Spontaneous
  Country: US (occurrence: US)
  Receive Date: 20150916
  Receipt Date: 20151027
  Transmission Date: 20160304
  Serious: No
  Sender: FDA-Public Use
  Company Number: US-ELI_LILLY_AND_COMPANY-US200909000623

PATIENT
  Age: 49 Year
  Sex: Male

DRUGS (1)
  1. FORTEO [Suspect]
     Active Substance: TERIPARATIDE
     Dosage: 20 UG, UNK
     Dates: end: 201002

REACTIONS (6)
  - Arthralgia [Unknown]
  - Intentional product misuse [Unknown]
  - Myalgia [Unknown]
  - Bone pain [Unknown]
  - Back pain [Unknown]
  - Medication error [Unknown]
